FAERS Safety Report 11723419 (Version 5)
Quarter: 2019Q2

REPORT INFORMATION
  Report Type: Report from Study
  Country: CN (occurrence: CN)
  Receive Date: 20151111
  Receipt Date: 20190404
  Transmission Date: 20190711
  Serious: Yes (Other)
  Sender: FDA-Public Use
  Company Number: PHHY2015CN146090

PATIENT
  Age: 44 Year
  Sex: Male
  Weight: 65 kg

DRUGS (147)
  1. MYFORTIC [Suspect]
     Active Substance: MYCOPHENOLATE SODIUM
     Dosage: 720 MG, QD
     Route: 048
     Dates: start: 20151109, end: 20151110
  2. METHYLPREDNISOLONE. [Suspect]
     Active Substance: METHYLPREDNISOLONE
     Indication: RENAL TRANSPLANT
     Dosage: 500 MG, UNK
     Route: 042
     Dates: start: 20151018, end: 20151020
  3. TACROLIMUS. [Suspect]
     Active Substance: TACROLIMUS
     Indication: IMMUNOSUPPRESSANT DRUG THERAPY
     Dosage: 4.5 MG, QD
     Route: 048
     Dates: start: 20151021, end: 20151025
  4. MEROPENEM. [Concomitant]
     Active Substance: MEROPENEM
     Indication: PROPHYLAXIS
     Dosage: 500 MG, TID
     Route: 042
     Dates: start: 20151019, end: 20151026
  5. MEROPENEM. [Concomitant]
     Active Substance: MEROPENEM
     Dosage: 500 MG, PRN
     Route: 042
     Dates: start: 20151018, end: 20151018
  6. CREATINE PHOSPHATE SODIUM [Concomitant]
     Active Substance: CREATINE
     Indication: PROPHYLAXIS
     Dosage: 2 G, QD
     Route: 042
     Dates: start: 20151022, end: 20151027
  7. DICLOFENAC SODIUM W/LIDOCAINE HYDROCHLORIDE [Concomitant]
     Indication: SEIZURE
     Dosage: 1 OT, PRN
     Route: 030
     Dates: start: 20151019, end: 20151019
  8. FRUSEMID//FUROSEMIDE [Concomitant]
     Dosage: 240 MG, PRN
     Route: 042
     Dates: start: 20151029, end: 20151029
  9. FRUSEMID//FUROSEMIDE [Concomitant]
     Dosage: 40 MG, PRN
     Route: 042
     Dates: start: 20151026, end: 20151027
  10. FRUSEMID//FUROSEMIDE [Concomitant]
     Dosage: 80 MG, QD
     Route: 042
     Dates: start: 20151023, end: 20151028
  11. MUCOPOLYSACCHARIDE [Concomitant]
     Indication: PHLEBITIS
     Dosage: 14 G, PRN
     Route: 065
     Dates: start: 20151108, end: 20151108
  12. NITRENDIPINE [Concomitant]
     Active Substance: NITRENDIPINE
     Dosage: 10 MG, PRN
     Route: 048
     Dates: start: 20151019, end: 20151019
  13. OMEPRAZOL//OMEPRAZOLE [Concomitant]
     Active Substance: OMEPRAZOLE
     Dosage: 40 MG, QD
     Route: 042
     Dates: start: 20151019, end: 20151020
  14. OMEPRAZOL//OMEPRAZOLE [Concomitant]
     Active Substance: OMEPRAZOLE
     Dosage: 40 MG, PRN
     Route: 042
     Dates: start: 20151019, end: 20151019
  15. TELMISARTAN. [Concomitant]
     Active Substance: TELMISARTAN
     Dosage: 80 MG, PRN
     Route: 048
     Dates: start: 20151019, end: 20151019
  16. ORNIDAZOLE AND SODIUM CHLORIDE [Concomitant]
     Dosage: 500 MG, BID
     Route: 042
     Dates: start: 20151019, end: 20151019
  17. PHENOBARBITAL. [Concomitant]
     Active Substance: PHENOBARBITAL
     Indication: SEDATION
     Dosage: 100 MG, PRN
     Route: 030
     Dates: start: 20151018, end: 20151018
  18. POLYENE PHOSPHATIDYLCHOLINE [Concomitant]
     Active Substance: PHOSPHOLIPID
     Indication: PROPHYLAXIS
     Dosage: 228 MG, TID
     Route: 048
     Dates: start: 20151113
  19. ALISTA//ALPROSTADIL [Concomitant]
     Dosage: 10 UG, QD
     Route: 042
     Dates: start: 20151002, end: 20151002
  20. AMBROXAN//AMBROXOL HYDROCHLORIDE [Concomitant]
     Indication: PRODUCTIVE COUGH
     Dosage: 15 MG, TID
     Route: 055
     Dates: start: 20151019, end: 20151104
  21. HUMAN ALBUMIN [Concomitant]
     Active Substance: ALBUMIN HUMAN
     Dosage: 20 G, PRN
     Route: 042
     Dates: start: 20151019, end: 20151019
  22. METHYLPREDNISOLONE. [Suspect]
     Active Substance: METHYLPREDNISOLONE
     Indication: IMMUNOSUPPRESSANT DRUG THERAPY
     Dosage: 400 MG, UNK
     Route: 042
     Dates: start: 20151021, end: 20151021
  23. PREDNISONE. [Suspect]
     Active Substance: PREDNISONE
     Indication: RENAL TRANSPLANT
     Dosage: 20 MG, QD
     Route: 048
     Dates: start: 20151021, end: 20151109
  24. TACROLIMUS. [Suspect]
     Active Substance: TACROLIMUS
     Dosage: 5.5 MG, QD
     Route: 048
     Dates: start: 20151026, end: 20151103
  25. IRON SUCROSE [Concomitant]
     Active Substance: IRON SUCROSE
     Indication: MINERAL SUPPLEMENTATION
     Dosage: 1 OT (VIAL), QD
     Route: 042
     Dates: start: 20151020, end: 20151020
  26. SODIUM CHLORIDE. [Concomitant]
     Active Substance: SODIUM CHLORIDE
     Dosage: 100 ML, PRN
     Route: 042
     Dates: start: 20151109, end: 20151109
  27. BUDESONIDE. [Concomitant]
     Active Substance: BUDESONIDE
     Indication: PRODUCTIVE COUGH
     Dosage: 1 OT, TID
     Route: 055
     Dates: start: 20151019, end: 20151104
  28. CARBOHYDRATES NOS W/ELECTROLYTES NOS [Concomitant]
     Dosage: 500 ML, QD
     Route: 042
     Dates: start: 20151019, end: 20151025
  29. DOPAMINE HYDROCHLORIDE. [Concomitant]
     Active Substance: DOPAMINE HYDROCHLORIDE
     Indication: HYPERTENSION
     Dosage: 180 MG, PRN
     Route: 042
     Dates: start: 20151020, end: 20151020
  30. LEVOCARNITINE. [Concomitant]
     Active Substance: LEVOCARNITINE
     Indication: PRODUCT USED FOR UNKNOWN INDICATION
     Dosage: 2 OT, PRN
     Route: 042
     Dates: start: 20151022, end: 20151022
  31. LOW MOLECULE HEPARIN [Concomitant]
     Indication: COAGULOPATHY
     Dosage: 2500 IU, PRN
     Route: 065
     Dates: start: 20151109, end: 20151109
  32. MAGNESIUM SULPHATE [Concomitant]
     Active Substance: MAGNESIUM SULFATE
     Indication: PRODUCT USED FOR UNKNOWN INDICATION
     Dosage: 1000 ML, PRN
     Route: 065
     Dates: start: 20151018, end: 20151018
  33. NIFEDIPINE. [Concomitant]
     Active Substance: NIFEDIPINE
     Indication: HYPERTENSION
     Dosage: 30 MG, BID
     Route: 048
     Dates: start: 20151019, end: 20151019
  34. NIFEDIPINE. [Concomitant]
     Active Substance: NIFEDIPINE
     Dosage: 30 MG, PRN
     Route: 048
     Dates: start: 20151019, end: 20151019
  35. NITRENDIPINE [Concomitant]
     Active Substance: NITRENDIPINE
     Indication: HYPERTENSION
     Dosage: 10 MG, TID
     Route: 048
     Dates: start: 20151026, end: 20151106
  36. OMEPRAZOL//OMEPRAZOLE [Concomitant]
     Active Substance: OMEPRAZOLE
     Indication: PROPHYLAXIS
     Dosage: 40 MG, BID
     Route: 042
     Dates: start: 20151020, end: 20151103
  37. PROMETHAZINE/PROMETHAZINE/HYDROCHLORIDE [Concomitant]
     Indication: HYPERSENSITIVITY
     Dosage: 25 MG, PRN
     Route: 030
     Dates: start: 20151026, end: 20151026
  38. PROMETHAZINE/PROMETHAZINE/HYDROCHLORIDE [Concomitant]
     Dosage: 25 MG, PRN
     Route: 030
     Dates: start: 20151102, end: 20151102
  39. PROMETHAZINE/PROMETHAZINE/HYDROCHLORIDE [Concomitant]
     Dosage: 25 MG, PRN
     Route: 030
     Dates: start: 20151109, end: 20151109
  40. MYFORTIC [Suspect]
     Active Substance: MYCOPHENOLATE SODIUM
     Indication: RENAL TRANSPLANT
     Dosage: 1440 MG, QD
     Route: 048
     Dates: start: 20151019
  41. TACROLIMUS. [Suspect]
     Active Substance: TACROLIMUS
     Dosage: 5 MG, QD
     Route: 048
     Dates: start: 20151104, end: 20151105
  42. TACROLIMUS. [Suspect]
     Active Substance: TACROLIMUS
     Dosage: 4 MG, QD
     Route: 048
     Dates: start: 20151109, end: 20151110
  43. IRON SUCROSE [Concomitant]
     Active Substance: IRON SUCROSE
     Dosage: 1 OT, PRN
     Route: 042
     Dates: start: 20151020, end: 20151114
  44. DICLOFENAC SODIUM W/LIDOCAINE HYDROCHLORIDE [Concomitant]
     Indication: ANALGESIC THERAPY
     Dosage: 1 OT (VIAL), QD
     Route: 030
     Dates: start: 20151022
  45. COMPOUND IPRATROPIUM BROMIDE [Concomitant]
     Indication: PRODUCTIVE COUGH
     Dosage: 1 OT, TID
     Route: 055
     Dates: start: 20151019, end: 20151104
  46. DICLOFENAC SODIUM W/LIDOCAINE HYDROCHLORIDE [Concomitant]
     Dosage: 1 OT, QD
     Route: 042
     Dates: start: 20151022, end: 20151022
  47. DICLOFENAC SODIUM W/LIDOCAINE HYDROCHLORIDE [Concomitant]
     Dosage: 1 OT, QD
     Route: 030
     Dates: start: 20151022, end: 20151022
  48. DILTIAZEM HYDROCHLORIDE. [Concomitant]
     Active Substance: DILTIAZEM HYDROCHLORIDE
     Indication: PRODUCT USED FOR UNKNOWN INDICATION
     Dosage: 30 MG, BID
     Route: 048
     Dates: start: 20151019, end: 20151028
  49. DOXOFYLLINE [Concomitant]
     Active Substance: DOXOFYLLINE
     Indication: WHEEZING
     Dosage: 200 MG, QD
     Route: 042
     Dates: start: 20151018, end: 20151019
  50. DOXOFYLLINE [Concomitant]
     Active Substance: DOXOFYLLINE
     Indication: COUGH
     Dosage: 200 MG, BID
     Route: 042
     Dates: start: 20151019, end: 20151104
  51. FRUSEMID//FUROSEMIDE [Concomitant]
     Dosage: 40 MG, QD
     Route: 042
     Dates: start: 20151031, end: 20151110
  52. METOPROLOL TARTRATE. [Concomitant]
     Active Substance: METOPROLOL TARTRATE
     Dosage: 25 MG, PRN
     Route: 048
     Dates: start: 20151023, end: 20151023
  53. NIFEDIPINE. [Concomitant]
     Active Substance: NIFEDIPINE
     Dosage: 30 MG, PRN
     Dates: start: 20151018, end: 20151018
  54. NITRENDIPINE [Concomitant]
     Active Substance: NITRENDIPINE
     Dosage: 10 MG, QD
     Route: 048
     Dates: start: 20151023, end: 20151025
  55. CETIRIZINE [Concomitant]
     Active Substance: CETIRIZINE HYDROCHLORIDE
     Indication: HYPERSENSITIVITY
     Dosage: 10 MG, PRN
     Route: 048
     Dates: start: 20151026, end: 20151026
  56. 15-AMINO ACID [Concomitant]
     Active Substance: AMINO ACIDS
     Dosage: 67 G, QD
     Route: 042
     Dates: start: 20151019, end: 20151025
  57. HUMAN ALBUMIN [Concomitant]
     Active Substance: ALBUMIN HUMAN
     Indication: SUPPLEMENTATION THERAPY
     Dosage: 10 G, PRN
     Dates: start: 20151018, end: 20151018
  58. PREDNISONE. [Suspect]
     Active Substance: PREDNISONE
     Indication: IMMUNOSUPPRESSANT DRUG THERAPY
     Dosage: 15 MG, QD
     Route: 048
     Dates: start: 20151110
  59. MEROPENEM. [Concomitant]
     Active Substance: MEROPENEM
     Indication: INFLAMMATION
     Dosage: 500 MG, BID
     Route: 042
     Dates: start: 20151018, end: 20151018
  60. DICLOFENAC SODIUM W/LIDOCAINE HYDROCHLORIDE [Concomitant]
     Dosage: 1 OT, PRN
     Dates: start: 20151021, end: 20151021
  61. DOXAZOSIN MESYLATE. [Concomitant]
     Active Substance: DOXAZOSIN MESYLATE
     Indication: HYPERTENSION
     Dosage: 4 MG, PRN
     Route: 048
     Dates: start: 20151025, end: 20151025
  62. DOXOFYLLINE [Concomitant]
     Active Substance: DOXOFYLLINE
     Dosage: 200 MG, QD
     Route: 042
     Dates: start: 20151104, end: 20151107
  63. METOPROLOL TARTRATE. [Concomitant]
     Active Substance: METOPROLOL TARTRATE
     Indication: HYPERTENSION
     Dosage: 25 MG, PRN
     Route: 048
     Dates: start: 20151019, end: 20151019
  64. NIFEDIPINE. [Concomitant]
     Active Substance: NIFEDIPINE
     Dosage: 30 MG, PRN
     Route: 048
     Dates: start: 20151021, end: 20151021
  65. NIFEDIPINE. [Concomitant]
     Active Substance: NIFEDIPINE
     Dosage: 30 MG, PRN
     Route: 048
     Dates: start: 20151022, end: 20151022
  66. TELMISARTAN. [Concomitant]
     Active Substance: TELMISARTAN
     Dosage: 80 MG, BID
     Route: 048
     Dates: start: 20151019, end: 20151019
  67. ALISTA//ALPROSTADIL [Concomitant]
     Indication: PROPHYLAXIS
     Dosage: 10 UG, QD
     Route: 042
     Dates: start: 20151020, end: 20151031
  68. VANCOMYCIN HYDROCHLORIDE. [Concomitant]
     Active Substance: VANCOMYCIN HYDROCHLORIDE
     Indication: INFECTION
     Dosage: 500 MG, QD
     Route: 042
     Dates: start: 20151026, end: 20151027
  69. VANCOMYCIN HYDROCHLORIDE. [Concomitant]
     Active Substance: VANCOMYCIN HYDROCHLORIDE
     Dosage: 500 MG, QD
     Route: 042
     Dates: start: 20151021, end: 20151101
  70. METHYLPREDISOLONE [Concomitant]
     Active Substance: METHYLPREDNISOLONE
     Indication: TRANSPLANT REJECTION
     Dosage: 400 MG, QD
     Route: 065
     Dates: start: 20151021, end: 20151021
  71. MYCOPHENOLATE SODIUM [Concomitant]
     Active Substance: MYCOPHENOLATE SODIUM
     Indication: TRANSPLANT REJECTION
     Dosage: 1440 MG, QD
     Route: 065
     Dates: start: 20151019, end: 20151019
  72. SCOPOLAMIN [Concomitant]
     Active Substance: SCOPOLAMINE
     Indication: PRODUCT USED FOR UNKNOWN INDICATION
     Dosage: 300 UG, PRN
     Route: 030
     Dates: start: 20151018, end: 20151018
  73. MYFORTIC [Suspect]
     Active Substance: MYCOPHENOLATE SODIUM
     Indication: PROPHYLAXIS AGAINST TRANSPLANT REJECTION
     Dosage: 1080 MG, QD
     Route: 048
     Dates: start: 20151020, end: 20151110
  74. MYFORTIC [Suspect]
     Active Substance: MYCOPHENOLATE SODIUM
     Dosage: 900 MG, QD
     Route: 048
     Dates: start: 20151111
  75. BASILIXIMAB [Suspect]
     Active Substance: BASILIXIMAB
     Indication: RENAL TRANSPLANT
     Dosage: 20 MG, QD
     Route: 065
     Dates: start: 20151018, end: 20151018
  76. TACROLIMUS. [Suspect]
     Active Substance: TACROLIMUS
     Indication: RENAL TRANSPLANT
     Dosage: 6.5 MG, QD
     Route: 048
     Dates: start: 20151019, end: 20151020
  77. SODIUM CHLORIDE. [Concomitant]
     Active Substance: SODIUM CHLORIDE
     Dosage: 100 ML, PRN
     Route: 042
     Dates: start: 20151120, end: 20151120
  78. MAGNESIUM [Concomitant]
     Active Substance: MAGNESIUM
     Indication: OEDEMA
     Dosage: 100 ML, PRN
     Route: 065
     Dates: start: 20151108, end: 20151108
  79. BETALOC [Concomitant]
     Active Substance: METOPROLOL TARTRATE
     Indication: PRODUCT USED FOR UNKNOWN INDICATION
     Dosage: 23.75 MG, QD
     Route: 048
  80. COMPOUND COENZYME [Concomitant]
     Indication: SUPPLEMENTATION THERAPY
     Dosage: 2 OT, QD
     Route: 042
     Dates: start: 20151018, end: 20151018
  81. COMPOUND GLUTAMINE GRANULES [Concomitant]
     Indication: PROPHYLAXIS
     Dosage: 67 MG, PRN
     Route: 048
     Dates: start: 20151020, end: 20151020
  82. COMPOUND LIQUORICE [Concomitant]
     Indication: COUGH
     Dosage: 10 ML, TID
     Route: 048
     Dates: start: 20151029, end: 20151029
  83. DOPAMINE HYDROCHLORIDE. [Concomitant]
     Active Substance: DOPAMINE HYDROCHLORIDE
     Dosage: 240 MG, PRN
     Route: 042
     Dates: start: 20151019, end: 20151019
  84. FRUSEMID//FUROSEMIDE [Concomitant]
     Dosage: 120 MG, PRN
     Route: 048
     Dates: start: 20151018, end: 20151018
  85. FRUSEMID//FUROSEMIDE [Concomitant]
     Dosage: 160 MG, PRN
     Route: 042
     Dates: start: 20151020, end: 20151020
  86. TELMISARTAN. [Concomitant]
     Active Substance: TELMISARTAN
     Indication: HYPERTENSION
     Dosage: 80 MG, PRN
     Route: 048
     Dates: start: 20151021, end: 20151021
  87. PANTOPRAZOLE [Concomitant]
     Active Substance: PANTOPRAZOLE
     Dosage: 40 MG, QD
     Route: 048
     Dates: start: 20151113
  88. MYCOPHENOLATE SODIUM [Concomitant]
     Active Substance: MYCOPHENOLATE SODIUM
     Dosage: 1080 MG, QD
     Route: 065
     Dates: start: 20151020, end: 20151110
  89. BASILIXIMAB [Suspect]
     Active Substance: BASILIXIMAB
     Dosage: 20 MG, QD
     Route: 065
     Dates: start: 20151022, end: 20151022
  90. TACROLIMUS. [Suspect]
     Active Substance: TACROLIMUS
     Dosage: 4.5 MG, QD
     Route: 048
     Dates: start: 20151106, end: 20151108
  91. MEROPENEM. [Concomitant]
     Active Substance: MEROPENEM
     Dosage: 500 MG, PRN
     Route: 042
     Dates: start: 20151019, end: 20151019
  92. SODIUM CHLORIDE. [Concomitant]
     Active Substance: SODIUM CHLORIDE
     Dosage: 1500 ML, PRN
     Route: 042
     Dates: start: 20151018, end: 20151118
  93. SODIUM CHLORIDE. [Concomitant]
     Active Substance: SODIUM CHLORIDE
     Dosage: 1500 ML, PRN
     Route: 042
     Dates: start: 20151020, end: 20151020
  94. CARBOHYDRATES NOS W/ELECTROLYTES NOS [Concomitant]
     Dosage: 500 ML, PRN
     Route: 042
     Dates: start: 20151019, end: 20151019
  95. COMPOUND COENZYME [Concomitant]
     Dosage: 2 OT, QD
     Route: 042
     Dates: start: 20151019, end: 20151025
  96. CREATINE PHOSPHATE SODIUM [Concomitant]
     Active Substance: CREATINE
     Dosage: 2 DF, PRN
     Route: 042
     Dates: start: 20151022, end: 20151022
  97. DICLOFENAC SODIUM W/LIDOCAINE HYDROCHLORIDE [Concomitant]
     Indication: ANALGESIC THERAPY
     Dosage: 1 OT, PRN
     Route: 030
     Dates: start: 20151018, end: 20151018
  98. DICLOFENAC SODIUM W/LIDOCAINE HYDROCHLORIDE [Concomitant]
     Dosage: 1 OT, QD
     Route: 030
     Dates: start: 20151022, end: 20151026
  99. FRUSEMID//FUROSEMIDE [Concomitant]
     Dosage: 120 MG, PRN
     Route: 042
     Dates: start: 20151021, end: 20151021
  100. FRUSEMID//FUROSEMIDE [Concomitant]
     Dosage: 160 MG, PRN
     Route: 042
     Dates: start: 20151019, end: 20151019
  101. LEVOCARNITINE. [Concomitant]
     Active Substance: LEVOCARNITINE
     Dosage: 2 OT, PRN
     Route: 042
     Dates: start: 20151027, end: 20151027
  102. L-GLUTAMINE//GLUTAMIC ACID [Concomitant]
     Indication: PROPHYLAXIS
     Dosage: 1340 MG, PRN
     Route: 048
     Dates: start: 20151019, end: 20151019
  103. L-GLUTAMINE//GLUTAMIC ACID [Concomitant]
     Dosage: 670 MG, TID
     Route: 042
     Dates: start: 20151029, end: 20151029
  104. METOPROLOL TARTRATE. [Concomitant]
     Active Substance: METOPROLOL TARTRATE
     Dosage: 25 MG, PRN
     Route: 048
     Dates: start: 20151021, end: 20151021
  105. NITRENDIPINE [Concomitant]
     Active Substance: NITRENDIPINE
     Dosage: 10 MG, PRN
     Route: 048
     Dates: start: 20151021, end: 20151021
  106. NITRENDIPINE [Concomitant]
     Active Substance: NITRENDIPINE
     Dosage: 20 MG, PRN
     Route: 048
     Dates: start: 20151018, end: 20151018
  107. TELMISARTAN. [Concomitant]
     Active Substance: TELMISARTAN
     Dosage: 80 MG, QD
     Route: 048
     Dates: start: 20151113
  108. ORNIDAZOLE AND SODIUM CHLORIDE [Concomitant]
     Dosage: 100 ML, PRN
     Route: 048
     Dates: start: 20151018, end: 20151018
  109. POTASSIUM CHLORIDE. [Concomitant]
     Active Substance: POTASSIUM CHLORIDE
     Indication: MINERAL SUPPLEMENTATION
     Dosage: 1000 MG, TID
     Route: 048
     Dates: start: 20151021, end: 20151026
  110. ALISTA//ALPROSTADIL [Concomitant]
     Dosage: 10 UG, QD
     Route: 042
     Dates: start: 20151102, end: 20151114
  111. METHYLPREDISOLONE [Concomitant]
     Active Substance: METHYLPREDNISOLONE
     Dosage: 500 MG, QD
     Route: 065
     Dates: start: 20151018, end: 20151020
  112. MYCOPHENOLATE SODIUM [Concomitant]
     Active Substance: MYCOPHENOLATE SODIUM
     Dosage: 720 MG, QD
     Route: 065
     Dates: start: 20151109, end: 20151110
  113. CETIRIZINE [Concomitant]
     Active Substance: CETIRIZINE HYDROCHLORIDE
     Dosage: 10 MG, PRN
     Route: 048
     Dates: start: 20151109, end: 20151109
  114. 15-AMINO ACID [Concomitant]
     Active Substance: AMINO ACIDS
     Indication: NUTRITIONAL SUPPLEMENTATION
     Dosage: 67 G, PRN
     Route: 042
     Dates: start: 20151019, end: 20151019
  115. HUMAN ALBUMIN [Concomitant]
     Active Substance: ALBUMIN HUMAN
     Dosage: 20 G, PRN
     Route: 042
     Dates: start: 20151020, end: 20151020
  116. SODIUM CHLORIDE. [Concomitant]
     Active Substance: SODIUM CHLORIDE
     Indication: DEVICE ISSUE
     Dosage: 100 ML, QD
     Route: 042
     Dates: start: 20151019, end: 20151030
  117. SODIUM CHLORIDE. [Concomitant]
     Active Substance: SODIUM CHLORIDE
     Dosage: 100 ML, PRN
     Route: 042
     Dates: start: 20151019, end: 20151019
  118. SODIUM CHLORIDE. [Concomitant]
     Active Substance: SODIUM CHLORIDE
     Dosage: 100 ML, PRN
     Route: 042
     Dates: start: 20151020, end: 20151021
  119. CARBOHYDRATES NOS W/ELECTROLYTES NOS [Concomitant]
     Indication: ELECTROLYTE SUBSTITUTION THERAPY
     Dosage: 500 ML, PRN
     Route: 042
     Dates: start: 20151011, end: 20151018
  120. CEPHAZOLINE SODIUM [Concomitant]
     Active Substance: CEFAZOLIN SODIUM
     Indication: SKIN TEST
     Dosage: 500 MG, PRN
     Route: 065
     Dates: start: 20151022, end: 20151026
  121. COMPOUND COENZYME [Concomitant]
     Dosage: 2 OT, PRN
     Route: 042
     Dates: start: 20151019, end: 20151019
  122. FRUSEMID//FUROSEMIDE [Concomitant]
     Indication: POLYURIA
     Dosage: 20 MG, PRN
     Route: 042
     Dates: start: 20151120, end: 20151120
  123. METOPROLOL TARTRATE. [Concomitant]
     Active Substance: METOPROLOL TARTRATE
     Dosage: 23.75 MG, PRN
     Route: 048
     Dates: start: 20151025, end: 20151025
  124. TRIMETAZIDINE DIHYDROCHLORIDE [Concomitant]
     Active Substance: TRIMETAZIDINE DIHYDROCHLORIDE
     Indication: PROPHYLAXIS
     Dosage: 20 MG, TID
     Route: 048
     Dates: start: 20151021, end: 20151114
  125. VANCOMYCIN HYDROCHLORIDE. [Concomitant]
     Active Substance: VANCOMYCIN HYDROCHLORIDE
     Indication: INFLAMMATION
     Dosage: 500 MG, BID
     Route: 042
     Dates: start: 20151026, end: 20151102
  126. MYCOPHENOLATE SODIUM [Concomitant]
     Active Substance: MYCOPHENOLATE SODIUM
     Dosage: 900 MG, QD
     Route: 065
     Dates: start: 20151111
  127. FELODIPIN [Concomitant]
     Active Substance: FELODIPINE
     Dosage: 1 OT, QD
     Route: 048
     Dates: start: 20151113
  128. TACROLIMUS. [Suspect]
     Active Substance: TACROLIMUS
     Dosage: 4.5 MG, QD
     Route: 048
     Dates: start: 20151111
  129. MUCOSOLVAN [Concomitant]
     Active Substance: AMBROXOL HYDROCHLORIDE
     Indication: PROPHYLAXIS
     Dosage: 30 MG, TID
     Route: 042
     Dates: start: 20151019, end: 20151104
  130. MUCOSOLVAN [Concomitant]
     Active Substance: AMBROXOL HYDROCHLORIDE
     Indication: SPUTUM RETENTION
  131. SODIUM CHLORIDE. [Concomitant]
     Active Substance: SODIUM CHLORIDE
     Indication: FLUID REPLACEMENT
     Dosage: 100 ML, PRN
     Route: 042
     Dates: start: 20151018, end: 20151018
  132. CEFOTIAM [Concomitant]
     Active Substance: CEFOTIAM
     Indication: ANTI-INFECTIVE THERAPY
     Dosage: 2000 MG, BID
     Route: 042
  133. CEFOTIAM [Concomitant]
     Active Substance: CEFOTIAM
     Indication: INFLAMMATION
  134. DOXAZOSIN MESYLATE. [Concomitant]
     Active Substance: DOXAZOSIN MESYLATE
     Dosage: 4 MG, BID
     Route: 048
     Dates: start: 20151025, end: 20151113
  135. LOW MOLECULE HEPARIN CALCIUM [Concomitant]
     Indication: COAGULOPATHY
     Dosage: 0.2 ML, PRN
     Route: 065
     Dates: start: 20151026, end: 20151026
  136. MICARDIS [Concomitant]
     Active Substance: TELMISARTAN
     Indication: HYPERTENSION
     Dosage: 80 MG, BID
     Route: 048
     Dates: start: 20151023, end: 20151114
  137. NIFEDIPINE. [Concomitant]
     Active Substance: NIFEDIPINE
     Dosage: 30 MG, PRN
     Route: 042
     Dates: start: 20151023, end: 20151023
  138. NITRENDIPINE [Concomitant]
     Active Substance: NITRENDIPINE
     Dosage: 10 MG, PRN
     Route: 048
     Dates: start: 20151024, end: 20151024
  139. TELMISARTAN. [Concomitant]
     Active Substance: TELMISARTAN
     Dosage: 80 MG, PRN
     Route: 048
     Dates: start: 20151023, end: 20151023
  140. ORNIDAZOLE AND SODIUM CHLORIDE [Concomitant]
     Indication: ANTI-INFECTIVE THERAPY
     Dosage: 100 ML, BID
     Route: 042
     Dates: start: 20151019, end: 20151020
  141. ORNIDAZOLE AND SODIUM CHLORIDE [Concomitant]
     Indication: INFLAMMATION
     Dosage: 100 UNK, UNK
     Route: 042
     Dates: start: 20151018, end: 20151019
  142. PANTOPRAZOLE [Concomitant]
     Active Substance: PANTOPRAZOLE
     Indication: PROPHYLAXIS
     Dosage: 40 MG, QD
     Route: 048
     Dates: start: 20151103, end: 20151104
  143. POTASSIUM CHLORIDE. [Concomitant]
     Active Substance: POTASSIUM CHLORIDE
     Dosage: 1000 MG, TID
     Route: 048
     Dates: start: 20151030, end: 20151103
  144. TRIMETAZIDINE DIHYDROCHLORIDE [Concomitant]
     Active Substance: TRIMETAZIDINE DIHYDROCHLORIDE
     Dosage: 20 MG, TID
     Route: 048
     Dates: start: 20151021, end: 20151114
  145. CETIRIZINE [Concomitant]
     Active Substance: CETIRIZINE HYDROCHLORIDE
     Dosage: 10 MG, PRN
     Route: 048
     Dates: start: 20151102, end: 20151102
  146. 15-AMINO ACID [Concomitant]
     Active Substance: AMINO ACIDS
     Indication: SUPPLEMENTATION THERAPY
     Dosage: 67 G, QD
     Route: 042
     Dates: start: 20151018, end: 20151018
  147. FELODIPIN [Concomitant]
     Active Substance: FELODIPINE
     Indication: HYPERTENSION
     Dosage: 5 MG, BID
     Route: 048
     Dates: start: 20151023, end: 20151114

REACTIONS (10)
  - Upper respiratory tract infection [Recovering/Resolving]
  - White blood cell count increased [Recovering/Resolving]
  - Haemoglobin decreased [Recovering/Resolving]
  - Neutrophil count increased [Recovering/Resolving]
  - Incision site pain [Recovering/Resolving]
  - Nasopharyngitis [Recovering/Resolving]
  - Lymphocyte count decreased [Recovering/Resolving]
  - Pyrexia [Recovering/Resolving]
  - Blood urea increased [Recovering/Resolving]
  - Red blood cells urine [Recovering/Resolving]

NARRATIVE: CASE EVENT DATE: 20151019
